FAERS Safety Report 25113958 (Version 1)
Quarter: 2025Q1

REPORT INFORMATION
  Report Type: Spontaneous
  Country: US (occurrence: None)
  Receive Date: 20250323
  Receipt Date: 20250323
  Transmission Date: 20250409
  Serious: Yes (Other)
  Sender: FDA-CTU
  Company Number: None

PATIENT
  Age: 55 Year
  Sex: Female
  Weight: 70.2 kg

DRUGS (9)
  1. WEGOVY [Suspect]
     Active Substance: SEMAGLUTIDE
     Indication: Hypertension
     Route: 058
     Dates: start: 20240701, end: 20250318
  2. WEGOVY [Suspect]
     Active Substance: SEMAGLUTIDE
     Indication: Cardiac disorder
  3. WEGOVY [Suspect]
     Active Substance: SEMAGLUTIDE
     Indication: Weight decreased
  4. TRAMADOL [Concomitant]
     Active Substance: TRAMADOL
  5. AMBIEN [Concomitant]
     Active Substance: ZOLPIDEM TARTRATE
  6. LISINOPRIL [Concomitant]
     Active Substance: LISINOPRIL
  7. IMIPRAMINE [Concomitant]
     Active Substance: IMIPRAMINE
  8. VYVANSE [Concomitant]
     Active Substance: LISDEXAMFETAMINE DIMESYLATE
  9. MOTRIN [Concomitant]
     Active Substance: IBUPROFEN

REACTIONS (2)
  - Vomiting [None]
  - Skin burning sensation [None]

NARRATIVE: CASE EVENT DATE: 20250318
